FAERS Safety Report 8448899-6 (Version None)
Quarter: 2012Q2

REPORT INFORMATION
  Report Type: 
  Country: None (occurrence: None)
  Receive Date: 20120619
  Receipt Date: 20120612
  Transmission Date: 20120825
  Serious: Yes (Hospitalization)
  Sender: FDA-Public Use
  Company Number: US-GLAXOSMITHKLINE-A0980981A

PATIENT
  Age: 44 Year
  Sex: Female

DRUGS (5)
  1. INTERFERON [Concomitant]
  2. ADVAIR DISKUS 100/50 [Suspect]
     Indication: ASTHMA
     Dosage: 1PUFF TWICE PER DAY
     Route: 055
     Dates: start: 20110701, end: 20120531
  3. ASMANEX TWISTHALER [Suspect]
     Indication: ASTHMA
     Route: 065
     Dates: end: 20110801
  4. ADVAIR DISKUS 100/50 [Suspect]
     Dosage: 2PUFF TWICE PER DAY
     Route: 055
     Dates: start: 20120201, end: 20120531
  5. FORADIL [Suspect]
     Indication: ASTHMA
     Route: 065
     Dates: end: 20110801

REACTIONS (7)
  - COUGH [None]
  - GLOSSODYNIA [None]
  - WHEEZING [None]
  - CANDIDIASIS [None]
  - SWOLLEN TONGUE [None]
  - TRANSIENT ISCHAEMIC ATTACK [None]
  - APHONIA [None]
